FAERS Safety Report 6122954-8 (Version None)
Quarter: 2009Q1

REPORT INFORMATION
  Report Type: 
  Country: None (occurrence: None)
  Receive Date: 20090318
  Receipt Date: 20080331
  Transmission Date: 20090719
  Serious: No
  Sender: FDA-Public Use
  Company Number: US-AMGEN-KDL269554

PATIENT
  Sex: Female

DRUGS (2)
  1. NEULASTA [Suspect]
     Indication: CHEMOTHERAPY
     Dates: start: 20060701
  2. REVLIMID [Concomitant]

REACTIONS (5)
  - ASTHENIA [None]
  - HAEMOGLOBIN ABNORMAL [None]
  - INJECTION SITE PAIN [None]
  - NAUSEA [None]
  - SYNCOPE [None]
